FAERS Safety Report 6801011-9 (Version None)
Quarter: 2010Q2

REPORT INFORMATION
  Report Type: 
  Country: None (occurrence: None)
  Receive Date: 20100624
  Receipt Date: 20100609
  Transmission Date: 20101027
  Serious: Yes (Life-Threatening, Hospitalization)
  Sender: FDA-Public Use
  Company Number: 2009001998

PATIENT
  Age: 91 Year
  Sex: Female
  Weight: 49 kg

DRUGS (10)
  1. ERLOTINIB (ERLOTINIB) (TABLET) (ERLOTINIB) [Suspect]
     Indication: LUNG ADENOCARCINOMA
     Dosage: (150 MG, QOD), ORAL
     Route: 048
     Dates: start: 20090513, end: 20090624
  2. CEFOPERAZONE SODIUM [Suspect]
     Indication: DRUG USE FOR UNKNOWN INDICATION
     Dosage: (1.5 GM, QD), INTRAVENOUS
     Route: 042
     Dates: start: 20090615, end: 20090624
  3. VERAPAMIL HYDROCHLORIDE [Concomitant]
  4. PROMAC [Concomitant]
  5. ALDACTONE [Concomitant]
  6. FRANDOL S [Concomitant]
  7. ALOSENN (ALOSENN) [Concomitant]
  8. URINORM (BENZBROMARONE) [Concomitant]
  9. PYRIDOXAL PHOSPHATE (PYRIDOXAL PHOSPHATE) [Concomitant]
  10. GLYCYRRHIZIC ACID (GLYCYRRHIZIC ACID) [Concomitant]

REACTIONS (16)
  - APPARENT LIFE THREATENING EVENT [None]
  - CONSTIPATION [None]
  - DIARRHOEA [None]
  - DIZZINESS [None]
  - ERYTHEMA [None]
  - HEPATIC FUNCTION ABNORMAL [None]
  - HYPERURICAEMIA [None]
  - INFECTION [None]
  - INFLAMMATION [None]
  - MALAISE [None]
  - METASTASES TO LYMPH NODES [None]
  - PAIN [None]
  - PSEUDOMONAS TEST POSITIVE [None]
  - PYREXIA [None]
  - SHOCK [None]
  - SICK SINUS SYNDROME [None]
